FAERS Safety Report 21850810 (Version 2)
Quarter: 2023Q1

REPORT INFORMATION
  Report Type: Spontaneous
  Country: US (occurrence: US)
  Receive Date: 20230111
  Receipt Date: 20230123
  Transmission Date: 20230417
  Serious: No
  Sender: FDA-Public Use
  Company Number: US-JNJFOC-20230111383

PATIENT
  Sex: Female
  Weight: 52.664 kg

DRUGS (2)
  1. SPRAVATO [Suspect]
     Active Substance: ESKETAMINE
     Indication: Depression
     Route: 045
  2. SPRAVATO [Suspect]
     Active Substance: ESKETAMINE
     Route: 045
     Dates: start: 20221202

REACTIONS (18)
  - Nonspecific reaction [Unknown]
  - Balance disorder [Unknown]
  - Anxiety [Unknown]
  - Heart rate increased [Unknown]
  - Blood pressure increased [Unknown]
  - Panic attack [Unknown]
  - Feeling cold [Unknown]
  - Dissociation [Unknown]
  - Morbid thoughts [Unknown]
  - Psychiatric symptom [Unknown]
  - Condition aggravated [Unknown]
  - Chest pain [Unknown]
  - Hypervigilance [Unknown]
  - Hyperhidrosis [Unknown]
  - Nightmare [Unknown]
  - Decreased appetite [Recovering/Resolving]
  - Drug ineffective [Unknown]
  - Feeling abnormal [Unknown]
